FAERS Safety Report 19071078 (Version 1)
Quarter: 2021Q1

REPORT INFORMATION
  Report Type: Spontaneous
  Country: JP (occurrence: JP)
  Receive Date: 20210330
  Receipt Date: 20210330
  Transmission Date: 20210420
  Serious: Yes (Other)
  Sender: FDA-Public Use
  Company Number: JP-ORGANON-2012JPN009710

PATIENT
  Age: 41 Year
  Sex: Female

DRUGS (1)
  1. BONALON [Suspect]
     Active Substance: ALENDRONATE SODIUM
     Dosage: 35 MILLIGRAM (MG) PER WEEK (QW)
     Route: 048
     Dates: start: 201905, end: 201906

REACTIONS (1)
  - Erythema multiforme [Unknown]
